FAERS Safety Report 12221085 (Version 5)
Quarter: 2016Q2

REPORT INFORMATION
  Report Type: Report from Study
  Country: US (occurrence: US)
  Receive Date: 20160330
  Receipt Date: 20160602
  Transmission Date: 20160815
  Serious: Yes (Other)
  Sender: FDA-Public Use
  Company Number: US-AMGEN-USASP2016038797

PATIENT
  Age: 65 Year
  Sex: Female

DRUGS (1)
  1. ENBREL [Suspect]
     Active Substance: ETANERCEPT
     Indication: RHEUMATOID ARTHRITIS
     Dosage: 50 MG, QWK
     Route: 065
     Dates: start: 201603

REACTIONS (13)
  - Grip strength decreased [Unknown]
  - Device leakage [Unknown]
  - Injection site extravasation [Unknown]
  - Limb injury [Unknown]
  - Underdose [Unknown]
  - Fatigue [Unknown]
  - Dry skin [Unknown]
  - Injection site swelling [Unknown]
  - Injection site erythema [Unknown]
  - Injection site pain [Unknown]
  - Erythema [Unknown]
  - Basedow^s disease [Unknown]
  - Hypertension [Unknown]

NARRATIVE: CASE EVENT DATE: 2016
